FAERS Safety Report 19918185 (Version 1)
Quarter: 2021Q4

REPORT INFORMATION
  Report Type: Spontaneous
  Country: US (occurrence: US)
  Receive Date: 20211004
  Receipt Date: 20211004
  Transmission Date: 20220303
  Serious: Yes (Other)
  Sender: FDA-Public Use
  Company Number: None

PATIENT
  Age: 57 Year
  Sex: Female

DRUGS (1)
  1. CAPECITABINE [Suspect]
     Active Substance: CAPECITABINE
     Route: 048
     Dates: start: 202107

REACTIONS (5)
  - Diarrhoea [None]
  - Abdominal pain [None]
  - Taste disorder [None]
  - Parosmia [None]
  - Feeling cold [None]

NARRATIVE: CASE EVENT DATE: 20210923
